FAERS Safety Report 21422026 (Version 8)
Quarter: 2023Q4

REPORT INFORMATION
  Report Type: Spontaneous
  Country: GB (occurrence: GB)
  Receive Date: 20221007
  Receipt Date: 20231025
  Transmission Date: 20240109
  Serious: Yes (Hospitalization, Other)
  Sender: FDA-Public Use
  Company Number: GB-EMA-DD-20191028-abdul_j-173044

PATIENT
  Age: 68 Year
  Sex: Female
  Weight: 92 kg

DRUGS (50)
  1. IRBESARTAN [Suspect]
     Active Substance: IRBESARTAN
     Indication: Abdominal discomfort
     Dosage: 150 G, QD
     Route: 065
     Dates: start: 20100912
  2. IRBESARTAN [Suspect]
     Active Substance: IRBESARTAN
     Indication: Depression
  3. CARBOCYSTEINE [Suspect]
     Active Substance: CARBOCYSTEINE
     Indication: Rheumatoid arthritis
     Dosage: 750 MG, QD
     Route: 065
     Dates: start: 20100917
  4. CARBOCYSTEINE [Suspect]
     Active Substance: CARBOCYSTEINE
     Indication: Off label use
  5. CIPROFLOXACIN HYDROCHLORIDE [Suspect]
     Active Substance: CIPROFLOXACIN HYDROCHLORIDE
     Indication: Abdominal discomfort
     Dosage: 1000 MG, QD
     Route: 065
     Dates: start: 20100917
  6. CIPROFLOXACIN HYDROCHLORIDE [Suspect]
     Active Substance: CIPROFLOXACIN HYDROCHLORIDE
     Indication: Rheumatoid arthritis
  7. CIPROFLOXACIN HYDROCHLORIDE [Suspect]
     Active Substance: CIPROFLOXACIN HYDROCHLORIDE
     Indication: Depression
  8. OMEPRAZOLE [Suspect]
     Active Substance: OMEPRAZOLE
     Indication: Abdominal discomfort
     Dosage: 20 MG, BID
     Route: 065
     Dates: start: 20100917
  9. OMEPRAZOLE [Suspect]
     Active Substance: OMEPRAZOLE
     Dosage: 80 MG, QD
     Route: 065
     Dates: start: 20100917
  10. ZINC [Suspect]
     Active Substance: PYRITHIONE ZINC\ZINC\ZINC CHLORIDE
     Indication: Depression
     Dosage: 750 MG, QD
     Route: 065
  11. ZINC [Suspect]
     Active Substance: PYRITHIONE ZINC\ZINC\ZINC CHLORIDE
     Indication: Abdominal discomfort
  12. CARBAMAZEPINE [Suspect]
     Active Substance: CARBAMAZEPINE
     Indication: Depression
     Dosage: 750 MG, QD
     Route: 065
     Dates: start: 20100917
  13. CARBAMAZEPINE [Suspect]
     Active Substance: CARBAMAZEPINE
     Indication: Rheumatoid arthritis
     Dosage: 750 MG, QD
     Dates: start: 20210917
  14. CARBAMAZEPINE [Suspect]
     Active Substance: CARBAMAZEPINE
     Indication: Abdominal discomfort
  15. VENLAFAXINE HYDROCHLORIDE [Suspect]
     Active Substance: VENLAFAXINE HYDROCHLORIDE
     Indication: Depression
     Dosage: 225 MG, QD (PROLONGED RELEASE)
     Route: 065
  16. VENLAFAXINE HYDROCHLORIDE [Suspect]
     Active Substance: VENLAFAXINE HYDROCHLORIDE
     Indication: Rheumatoid arthritis
  17. METHOTREXATE [Suspect]
     Active Substance: METHOTREXATE
     Indication: Rheumatoid arthritis
     Dosage: 17.5 MG, QW
     Route: 065
     Dates: start: 20100917
  18. AMINOPHYLLINE [Suspect]
     Active Substance: AMINOPHYLLINE
     Indication: Product used for unknown indication
     Dosage: 400 MG, QD
     Route: 065
     Dates: start: 20100917
  19. AMINOPHYLLINE [Suspect]
     Active Substance: AMINOPHYLLINE
     Dosage: 400 MG, DAILY
     Route: 065
     Dates: start: 20200917
  20. SULFAGUANIDINE [Suspect]
     Active Substance: SULFAGUANIDINE
     Indication: Abdominal discomfort
     Dosage: 750 MG, QD
     Route: 065
  21. AMOXICILLIN [Suspect]
     Active Substance: AMOXICILLIN
     Indication: Abdominal discomfort
     Dosage: 25 DF
     Route: 065
     Dates: start: 20210904
  22. AMOXICILLIN [Suspect]
     Active Substance: AMOXICILLIN
     Dosage: 125 MG/ 5 ML
     Dates: start: 20210904
  23. THEOPHYLLINE [Suspect]
     Active Substance: THEOPHYLLINE
     Indication: Depression
     Dosage: 750 MG, QD
     Route: 065
  24. THEOPHYLLINE [Suspect]
     Active Substance: THEOPHYLLINE
     Indication: Abdominal discomfort
     Dosage: 225 MG
     Route: 065
  25. THEOPHYLLINE [Suspect]
     Active Substance: THEOPHYLLINE
     Dosage: 750 MG, QD
     Route: 065
  26. DIETARY SUPPLEMENT\PROBIOTICS [Suspect]
     Active Substance: DIETARY SUPPLEMENT\PROBIOTICS NOS
     Indication: Abdominal discomfort
     Dosage: 750 MG
  27. DIETARY SUPPLEMENT\PROBIOTICS [Suspect]
     Active Substance: DIETARY SUPPLEMENT\PROBIOTICS NOS
     Indication: Depression
  28. ENBREL [Suspect]
     Active Substance: ETANERCEPT
     Indication: Rheumatoid arthritis
     Dosage: 50 MG, QW
     Route: 058
     Dates: start: 20100917
  29. ENBREL [Suspect]
     Active Substance: ETANERCEPT
     Dosage: 50 MG, QW
     Route: 065
     Dates: start: 20210917
  30. PROBIOTICS NOS [Suspect]
     Active Substance: PROBIOTICS NOS
     Indication: Depression
     Dosage: 750 MG
     Route: 065
  31. PROBIOTICS NOS [Suspect]
     Active Substance: PROBIOTICS NOS
     Indication: Abdominal discomfort
  32. GUANIDINE [Suspect]
     Active Substance: GUANIDINE
     Indication: Depression
     Dosage: 750 MG, QD
  33. GUANIDINE [Suspect]
     Active Substance: GUANIDINE
     Indication: Abdominal discomfort
  34. BIFIDOBACTERIUM LONGUM [Suspect]
     Active Substance: BIFIDOBACTERIUM LONGUM
     Indication: Abdominal discomfort
     Dosage: 750 MG
     Route: 065
  35. BIFIDOBACTERIUM LONGUM [Suspect]
     Active Substance: BIFIDOBACTERIUM LONGUM
     Indication: Depression
  36. ACTIVATED CHARCOAL [Suspect]
     Active Substance: ACTIVATED CHARCOAL
     Indication: Product used for unknown indication
     Dosage: 750 MG, QD
  37. LACTOBACILLUS RHAMNOSUS [Suspect]
     Active Substance: LACTOBACILLUS RHAMNOSUS
     Indication: Abdominal discomfort
     Dosage: 750 MG
  38. LACTOBACILLUS RHAMNOSUS [Suspect]
     Active Substance: LACTOBACILLUS RHAMNOSUS
     Indication: Depression
  39. LEVOTHYROXINE [Concomitant]
     Active Substance: LEVOTHYROXINE
     Indication: Abdominal discomfort
     Dosage: UNK
     Route: 016
  40. ORUVAIL [Concomitant]
     Active Substance: KETOPROFEN
     Indication: Empty sella syndrome
     Dosage: UNK
     Route: 065
  41. ACTIVATED CHARCOAL [Concomitant]
     Active Substance: ACTIVATED CHARCOAL
     Indication: Product used for unknown indication
     Dosage: 750 MG
  42. CETIRIZINE [Concomitant]
     Active Substance: CETIRIZINE HYDROCHLORIDE
     Indication: Abdominal discomfort
     Dosage: UNK
     Route: 065
  43. EZETIMIBE [Concomitant]
     Active Substance: EZETIMIBE
     Indication: Product used for unknown indication
     Dosage: 50 MG, QW, MYCLIC PEN
     Route: 065
     Dates: start: 20100917
  44. EZETIMIBE [Concomitant]
     Active Substance: EZETIMIBE
     Dosage: 50 MG, QW, MYCLIC PEN
     Route: 065
     Dates: start: 20210917
  45. BENDROFLUMETHIAZIDE [Concomitant]
     Active Substance: BENDROFLUMETHIAZIDE
     Indication: Depression
     Dosage: 750 MG
     Route: 065
  46. BENDROFLUMETHIAZIDE [Concomitant]
     Active Substance: BENDROFLUMETHIAZIDE
     Indication: Pituitary tumour
  47. FOLIC ACID [Concomitant]
     Active Substance: FOLIC ACID
     Indication: Product used for unknown indication
     Dosage: UNK
     Route: 065
  48. CABERGOLINE [Concomitant]
     Active Substance: CABERGOLINE
     Indication: Empty sella syndrome
     Dosage: UNK
     Route: 065
  49. CABERGOLINE [Concomitant]
     Active Substance: CABERGOLINE
     Indication: Pituitary tumour
  50. KETOPROFEN [Concomitant]
     Active Substance: KETOPROFEN
     Dosage: UNK

REACTIONS (13)
  - Lower respiratory tract infection [Not Recovered/Not Resolved]
  - Pulmonary pain [Unknown]
  - Abdominal discomfort [Unknown]
  - Amyloid arthropathy [Unknown]
  - Rash [Not Recovered/Not Resolved]
  - Obesity [Unknown]
  - Arthropathy [Unknown]
  - Drug abuse [Unknown]
  - Overdose [Unknown]
  - Knee arthroplasty [Unknown]
  - Product dose omission issue [Unknown]
  - Intentional product misuse [Unknown]
  - Off label use [Unknown]

NARRATIVE: CASE EVENT DATE: 20201001
